FAERS Safety Report 14820204 (Version 1)
Quarter: 2018Q2

REPORT INFORMATION
  Report Type: Spontaneous
  Country: US (occurrence: US)
  Receive Date: 20180403
  Receipt Date: 20180403
  Transmission Date: 20180711
  Serious: No
  Sender: FDA-Public Use
  Company Number: None

PATIENT
  Sex: Female

DRUGS (1)
  1. RAW FORM ORGANICS MAENG DA 150 RUBY CAPSULES KRATOM [Suspect]
     Active Substance: MITRAGYNINE\HERBALS

REACTIONS (4)
  - Malaise [None]
  - Diarrhoea [None]
  - Gastritis [None]
  - Product use issue [None]
